FAERS Safety Report 11940666 (Version 2)
Quarter: 2016Q1

REPORT INFORMATION
  Report Type: Spontaneous
  Country: JP (occurrence: JP)
  Receive Date: 20160122
  Receipt Date: 20160126
  Transmission Date: 20160526
  Serious: Yes (Hospitalization)
  Sender: FDA-Public Use
  Company Number: PHJP2016JP001356

PATIENT
  Age: 73 Year
  Sex: Female

DRUGS (1)
  1. CARBAMAZEPINE. [Suspect]
     Active Substance: CARBAMAZEPINE
     Indication: TRIGEMINAL NEURALGIA
     Dosage: UNK
     Route: 048

REACTIONS (11)
  - Oropharyngeal discomfort [Unknown]
  - Conjunctival hyperaemia [Not Recovered/Not Resolved]
  - Hepatic function abnormal [Not Recovered/Not Resolved]
  - Rash pustular [Unknown]
  - Scab [Unknown]
  - Rash [Recovering/Resolving]
  - Pyrexia [Unknown]
  - Lip swelling [Unknown]
  - Swelling face [Unknown]
  - Erythema [Unknown]
  - Skin lesion [Unknown]
